FAERS Safety Report 4369124-1 (Version None)
Quarter: 2004Q2

REPORT INFORMATION
  Report Type: 
  Country: None (occurrence: None)
  Receive Date: 20040528
  Receipt Date: 20040518
  Transmission Date: 20050107
  Serious: Yes (Other)
  Sender: FDA-Public Use
  Company Number: 2004211388GB

PATIENT
  Age: 55 Year
  Sex: Female

DRUGS (7)
  1. CABASER (CABERGOLINE) TABLET 1-4 MG [Suspect]
     Indication: PARKINSON'S DISEASE
     Dosage: SEE IMAGE
     Route: 048
     Dates: start: 20030601
  2. CABASER (CABERGOLINE) TABLET 1-4 MG [Suspect]
     Indication: PARKINSON'S DISEASE
     Dosage: SEE IMAGE
     Route: 048
     Dates: start: 20030701
  3. CABASER (CABERGOLINE) TABLET 1-4 MG [Suspect]
     Indication: PARKINSON'S DISEASE
     Dosage: SEE IMAGE
     Route: 048
     Dates: start: 20040101
  4. CABASER (CABERGOLINE) TABLET 1-4 MG [Suspect]
     Indication: PARKINSON'S DISEASE
     Dosage: SEE IMAGE
     Route: 048
     Dates: start: 20040301
  5. MENZHEXOL (TRIHEXYPHENIDYL) [Concomitant]
  6. THYROXINE (LEVOTHYROXINE SODIUM) [Concomitant]
  7. FUROSEMIDE [Concomitant]

REACTIONS (4)
  - BLOOD ALKALINE PHOSPHATASE INCREASED [None]
  - CARDIOMEGALY [None]
  - CHEST PAIN [None]
  - RED BLOOD CELL SEDIMENTATION RATE INCREASED [None]
